FAERS Safety Report 8137306 (Version 2)
Quarter: 2021Q4

REPORT INFORMATION
  Report Type: Spontaneous
  Country: IT (occurrence: IT)
  Receive Date: 20110915
  Receipt Date: 20211228
  Transmission Date: 20220303
  Serious: Yes (Other)
  Sender: FDA-Public Use
  Company Number: PHHY2011IT81236

PATIENT
  Age: 64 Year
  Sex: Male

DRUGS (1)
  1. ZOMETA [Suspect]
     Active Substance: ZOLEDRONIC ACID
     Indication: Adjuvant therapy
     Dosage: 4 MG, QMO (AS MONTHLY INFUSION)
     Route: 042

REACTIONS (1)
  - Osteonecrosis of jaw [Unknown]
